FAERS Safety Report 11038150 (Version 2)
Quarter: 2015Q2

REPORT INFORMATION
  Report Type: Spontaneous
  Country: US (occurrence: US)
  Receive Date: 20150416
  Receipt Date: 20150521
  Transmission Date: 20150821
  Serious: No
  Sender: FDA-Public Use
  Company Number: US-PFIZER INC-2015124270

PATIENT
  Age: 83 Year
  Sex: Female

DRUGS (1)
  1. ADVIL [Suspect]
     Active Substance: IBUPROFEN
     Indication: MUSCLE SPASMS
     Dosage: 1 DF, EVERY 4 HRS
     Dates: start: 20150408

REACTIONS (2)
  - Drug ineffective [Unknown]
  - Pain [Unknown]
